FAERS Safety Report 9637778 (Version 3)
Quarter: 2013Q4

REPORT INFORMATION
  Report Type: Spontaneous
  Country: BR (occurrence: BR)
  Receive Date: 20131022
  Receipt Date: 20131101
  Transmission Date: 20140711
  Serious: Yes (Death, Life-Threatening, Hospitalization, Disabling, Other)
  Sender: FDA-Public Use
  Company Number: BR-B.I. PHARMACEUTICALS,INC./RIDGEFIELD-2013-BR-01058BR

PATIENT
  Age: 99 Year
  Sex: Female
  Weight: 78 kg

DRUGS (4)
  1. PRADAXA [Suspect]
     Indication: ATRIAL FIBRILLATION
     Dosage: 220 MG
     Route: 048
     Dates: start: 20130913
  2. AMIODARONE [Concomitant]
     Indication: ATRIAL FIBRILLATION
     Dosage: 600 MG
     Dates: start: 20130913
  3. GLICOSAMINA GLICANOS [Concomitant]
     Indication: OSTEOARTHRITIS
  4. CONDROITINA [Concomitant]
     Indication: OSTEOARTHRITIS

REACTIONS (14)
  - Cardiac arrest [Fatal]
  - Haemorrhage [Unknown]
  - Pneumonia [Not Recovered/Not Resolved]
  - Gastrointestinal haemorrhage [Recovered/Resolved]
  - Renal impairment [Not Recovered/Not Resolved]
  - Dyspnoea [Unknown]
  - Hiatus hernia [Not Recovered/Not Resolved]
  - Malaise [Not Recovered/Not Resolved]
  - Productive cough [Not Recovered/Not Resolved]
  - Haemorrhage [Recovered/Resolved]
  - Dyspepsia [Recovered/Resolved]
  - Nausea [Recovered/Resolved]
  - Anaemia [Recovered/Resolved]
  - Gastritis [Recovered/Resolved]
